FAERS Safety Report 5336817-9 (Version None)
Quarter: 2007Q2

REPORT INFORMATION
  Report Type: 
  Country: None (occurrence: None)
  Receive Date: 20070529
  Receipt Date: 20070521
  Transmission Date: 20071010
  Serious: Yes (Life-Threatening, Other)
  Sender: FDA-Public Use
  Company Number: PHRM2007FR01474

PATIENT
  Age: 83 Year
  Sex: Female

DRUGS (1)
  1. EXELON [Suspect]
     Indication: DEMENTIA
     Dosage: 1.5 MG, BID
     Route: 048
     Dates: start: 20070518, end: 20070518

REACTIONS (4)
  - CEREBRAL VENTRICLE DILATATION [None]
  - COMA [None]
  - HYDROCEPHALUS [None]
  - UNRESPONSIVE TO STIMULI [None]
